FAERS Safety Report 8511948-0 (Version None)
Quarter: 2012Q3

REPORT INFORMATION
  Report Type: 
  Country: None (occurrence: None)
  Receive Date: 20120716
  Receipt Date: 20120711
  Transmission Date: 20120928
  Serious: Yes (Other)
  Sender: FDA-Public Use
  Company Number: PHEH2012US013612

PATIENT
  Sex: Female
  Weight: 91.156 kg

DRUGS (1)
  1. AFINITOR [Suspect]
     Indication: RENAL NEOPLASM
     Dosage: 10 MG, DAILY
     Route: 048
     Dates: start: 20120510, end: 20120612

REACTIONS (8)
  - MENTAL STATUS CHANGES [None]
  - OEDEMA [None]
  - ERYTHEMA [None]
  - RENAL FAILURE ACUTE [None]
  - CONFUSIONAL STATE [None]
  - PYREXIA [None]
  - ANGIOEDEMA [None]
  - DYSPNOEA [None]
